FAERS Safety Report 14822796 (Version 1)
Quarter: 2018Q2

REPORT INFORMATION
  Report Type: Spontaneous
  Country: RO (occurrence: RO)
  Receive Date: 20180427
  Receipt Date: 20180427
  Transmission Date: 20180711
  Serious: Yes (Hospitalization, Other)
  Sender: FDA-Public Use
  Company Number: RO-PFIZER INC-2018123806

PATIENT
  Age: 69 Year
  Sex: Male
  Weight: 64 kg

DRUGS (3)
  1. FUROSEMID [Concomitant]
     Active Substance: FUROSEMIDE
     Dosage: UNK, ONCE IN THE MORNING
  2. AXITINIB [Suspect]
     Active Substance: AXITINIB
     Indication: RENAL CANCER METASTATIC
     Dosage: 10 MG, PER DAY
     Dates: start: 201709, end: 20180114
  3. TRAMADOL. [Concomitant]
     Active Substance: TRAMADOL
     Dosage: UNK, TWICE A DAY (1 IN THE MORNING AND 1 IN THE EVENING)

REACTIONS (5)
  - Speech disorder [Unknown]
  - General physical health deterioration [Unknown]
  - Decreased appetite [Unknown]
  - Dyspnoea [Unknown]
  - Dizziness [Unknown]

NARRATIVE: CASE EVENT DATE: 201801
